FAERS Safety Report 11080976 (Version 1)
Quarter: 2015Q2

REPORT INFORMATION
  Report Type: Spontaneous
  Country: IT (occurrence: IT)
  Receive Date: 20150501
  Receipt Date: 20150501
  Transmission Date: 20150821
  Serious: Yes (Other)
  Sender: FDA-Public Use
  Company Number: IT-JNJFOC-20150419384

PATIENT
  Age: 41 Year
  Sex: Male

DRUGS (4)
  1. DIBASE [Concomitant]
     Active Substance: CHOLECALCIFEROL
     Indication: PRODUCT USED FOR UNKNOWN INDICATION
     Route: 065
     Dates: start: 20130507
  2. PREZISTA [Suspect]
     Active Substance: DARUNAVIR ETHANOLATE
     Indication: ACUTE HIV INFECTION
     Route: 048
     Dates: start: 20121126
  3. TRUVADA [Suspect]
     Active Substance: EMTRICITABINE\TENOFOVIR DISOPROXIL FUMARATE
     Indication: ACUTE HIV INFECTION
     Route: 048
     Dates: start: 20120620, end: 20140923
  4. NORVIR [Suspect]
     Active Substance: RITONAVIR
     Indication: ACUTE HIV INFECTION
     Route: 048
     Dates: start: 20120620, end: 20140923

REACTIONS (1)
  - Osteoporosis [Not Recovered/Not Resolved]

NARRATIVE: CASE EVENT DATE: 20140131
